FAERS Safety Report 17407629 (Version 1)
Quarter: 2020Q1

REPORT INFORMATION
  Report Type: Report from Study
  Country: GR (occurrence: GR)
  Receive Date: 20200212
  Receipt Date: 20200212
  Transmission Date: 20200409
  Serious: Yes (Other)
  Sender: FDA-Public Use
  Company Number: GR-ELI_LILLY_AND_COMPANY-GR202002000928

PATIENT
  Age: 82 Year
  Sex: Female

DRUGS (6)
  1. ANGORON [Concomitant]
     Active Substance: AMIODARONE HYDROCHLORIDE
     Indication: ATRIAL FIBRILLATION
     Dosage: 1 DOSAGE FORM, DAILY
  2. ANGORON [Concomitant]
     Active Substance: AMIODARONE HYDROCHLORIDE
     Indication: ARRHYTHMIA
  3. LOPRESOR [METOPROLOL FUMARATE] [Concomitant]
     Active Substance: METOPROLOL FUMARATE
     Indication: ATRIAL FIBRILLATION
     Dosage: 1.5 DOSAGE FORM, DAILY
  4. TERIPARATIDE [Suspect]
     Active Substance: TERIPARATIDE
     Indication: OSTEOPOROSIS
     Dosage: 20 UG, DAILY
     Route: 058
     Dates: start: 20180622, end: 201912
  5. LOPRESOR [METOPROLOL FUMARATE] [Concomitant]
     Active Substance: METOPROLOL FUMARATE
     Indication: ARRHYTHMIA
  6. TILDIEM [Concomitant]
     Active Substance: DILTIAZEM HYDROCHLORIDE
     Indication: HYPERTENSION
     Dosage: 3 DOSAGE FORM, DAILY

REACTIONS (1)
  - Blood alkaline phosphatase increased [Unknown]
